FAERS Safety Report 13472019 (Version 3)
Quarter: 2017Q2

REPORT INFORMATION
  Report Type: Spontaneous
  Country: UA (occurrence: UA)
  Receive Date: 20170424
  Receipt Date: 20170613
  Transmission Date: 20170830
  Serious: Yes (Other)
  Sender: FDA-Public Use
  Company Number: UA-AUROBINDO-AUR-APL-2017-33105

PATIENT
  Sex: Female

DRUGS (1)
  1. TRANSTOP [Suspect]
     Active Substance: TRANEXAMIC ACID
     Indication: PRODUCT USED FOR UNKNOWN INDICATION
     Dosage: UNK
     Route: 065

REACTIONS (2)
  - Blindness transient [Recovered/Resolved]
  - Exposure during pregnancy [Unknown]
